FAERS Safety Report 7841490-1 (Version None)
Quarter: 2011Q4

REPORT INFORMATION
  Report Type: 
  Country: None (occurrence: None)
  Receive Date: 20111020
  Receipt Date: 20111005
  Transmission Date: 20120403
  Serious: Yes (Hospitalization)
  Sender: FDA-Public Use
  Company Number: 2011SGN00208

PATIENT
  Age: 33 Year
  Sex: Female
  Weight: 48.1 kg

DRUGS (14)
  1. BRENTUXIMAB VEDOTIN (BRENTUXIMAB VEDOTIN) INJECTION [Suspect]
     Indication: HODGKIN'S DISEASE
     Dosage: 1.2 MG/KG, Q14D, INTRAVENOUS
     Route: 042
     Dates: start: 20110408, end: 20110909
  2. ANUSOL (BISMUTH HYDROXIDE, BISMUTH SUBGALLATE, BORIC ACID, MYROXYLON B [Concomitant]
  3. TRAMADOL HCL [Concomitant]
  4. GRANISETRON (GRANISETRON HYDROCHLORIDE) [Concomitant]
  5. PHENERGAN [Concomitant]
  6. BLEOMYCIN SULFATE [Suspect]
     Indication: HODGKIN'S DISEASE
     Dosage: 10 UNITS/M2, Q14D, INTRAVENOUS
     Route: 042
     Dates: start: 20110408, end: 20110826
  7. VINBLASTINE SULFATE [Suspect]
     Indication: HODGKIN'S DISEASE
     Dosage: 6 MG/M2, Q14D, INTRAVENOUS
     Route: 042
     Dates: start: 20110408, end: 20110909
  8. PROTEIN SUPPLEMENTS [Concomitant]
  9. LACTULOSE [Concomitant]
  10. DOXORUBICIN HYDROCHLORIDE [Suspect]
     Indication: HODGKIN'S DISEASE
     Dosage: 25 MG/M2, Q14D, INTRAVENOUS
     Route: 042
     Dates: start: 20110408, end: 20110909
  11. DACARBAZINE [Suspect]
     Indication: HODGKIN'S DISEASE
     Dosage: 375 MG/M2, Q14D, INTRAVENOUS
     Route: 042
     Dates: start: 20110408, end: 20110909
  12. MAGNESIUM PLUS (MAGNESIUM) [Concomitant]
  13. ZOFRAN (ONDANSETRON HYDROHLORIDE) [Concomitant]
  14. ATIVAN [Concomitant]

REACTIONS (14)
  - PNEUMONIA [None]
  - PULMONARY TOXICITY [None]
  - PULMONARY OEDEMA [None]
  - TOXICITY TO VARIOUS AGENTS [None]
  - ORTHOSTATIC HYPOTENSION [None]
  - ATELECTASIS [None]
  - ACUTE RESPIRATORY FAILURE [None]
  - PNEUMOCYSTIS JIROVECI PNEUMONIA [None]
  - TACHYCARDIA [None]
  - SUBCUTANEOUS EMPHYSEMA [None]
  - NEUTROPHIL PERCENTAGE INCREASED [None]
  - BREATH SOUNDS ABNORMAL [None]
  - WHITE BLOOD CELL COUNT INCREASED [None]
  - PNEUMOTHORAX [None]
